FAERS Safety Report 21357860 (Version 1)
Quarter: 2022Q3

REPORT INFORMATION
  Report Type: Spontaneous
  Country: US (occurrence: US)
  Receive Date: 20220921
  Receipt Date: 20220921
  Transmission Date: 20221027
  Serious: No
  Sender: FDA-Public Use
  Company Number: US-ELI_LILLY_AND_COMPANY-US202208013196

PATIENT
  Age: 57 Year
  Sex: Female

DRUGS (1)
  1. BASAGLAR [Suspect]
     Active Substance: INSULIN GLARGINE
     Indication: Product used for unknown indication
     Dosage: 26 U, UNKNOWN
     Route: 065
     Dates: start: 2017

REACTIONS (1)
  - Incorrect dosage administered [Not Recovered/Not Resolved]

NARRATIVE: CASE EVENT DATE: 20220822
